FAERS Safety Report 8251264-8 (Version None)
Quarter: 2012Q2

REPORT INFORMATION
  Report Type: 
  Country: None (occurrence: None)
  Receive Date: 20120402
  Receipt Date: 20120326
  Transmission Date: 20120825
  Serious: Yes (Other)
  Sender: FDA-Public Use
  Company Number: US-TEVA-330684USA

PATIENT
  Age: 24 Year
  Sex: Female

DRUGS (6)
  1. CYCLOPHOSPHAMIDE [Suspect]
     Indication: BREAST CANCER
     Route: 065
  2. DIPHENHYDRAMINE HCL [Concomitant]
     Indication: INSOMNIA
     Route: 065
  3. PACLITAXEL [Suspect]
     Indication: BREAST CANCER
     Route: 065
  4. OXYCODONE HCL [Concomitant]
     Indication: OVARIAN HYPERSTIMULATION SYNDROME
     Route: 065
  5. DOXORUBICIN HCL [Suspect]
     Indication: BREAST CANCER
     Route: 065
  6. LORAZEPAM [Concomitant]
     Indication: ADJUSTMENT DISORDER WITH MIXED ANXIETY AND DEPRESSED MOOD
     Route: 065

REACTIONS (5)
  - APHASIA [None]
  - DISTURBANCE IN ATTENTION [None]
  - LEARNING DISORDER [None]
  - COGNITIVE DISORDER [None]
  - MEMORY IMPAIRMENT [None]
